FAERS Safety Report 16325821 (Version 2)
Quarter: 2019Q3

REPORT INFORMATION
  Report Type: Report from Study
  Country: ZA (occurrence: ZA)
  Receive Date: 20190517
  Receipt Date: 20190725
  Transmission Date: 20191004
  Serious: Yes (Life-Threatening)
  Sender: FDA-Public Use
  Company Number: ZA-SA-2019SA028954

PATIENT
  Age: 63 Year
  Sex: Female

DRUGS (3)
  1. INSULIN GLARGINE [Suspect]
     Active Substance: INSULIN GLARGINE
     Dosage: 21 U, HS
     Dates: start: 20181229
  2. NOVORAPID [Concomitant]
     Active Substance: INSULIN ASPART
     Dosage: 6 U, TID (BEFORE SUPPER, BEFORE LUNCH AND BEFORE BREAKFAST)
     Dates: start: 20190401
  3. INSULIN GLARGINE [Suspect]
     Active Substance: INSULIN GLARGINE
     Dosage: 20 U, HS
     Dates: start: 20181229

REACTIONS (8)
  - Hyperglycaemia [Not Recovered/Not Resolved]
  - Hypoglycaemia [Not Recovered/Not Resolved]
  - Product dose omission [Unknown]
  - Asthma [Not Recovered/Not Resolved]
  - Hypoglycaemia [Recovered/Resolved]
  - Glycosylated haemoglobin increased [Unknown]
  - Malaise [Not Recovered/Not Resolved]
  - Decreased appetite [Not Recovered/Not Resolved]

NARRATIVE: CASE EVENT DATE: 20190513
